FAERS Safety Report 9917122 (Version 2)
Quarter: 2014Q1

REPORT INFORMATION
  Report Type: Spontaneous
  Country: IT (occurrence: IT)
  Receive Date: 20140221
  Receipt Date: 20140221
  Transmission Date: 20141002
  Serious: Yes (Other)
  Sender: FDA-Public Use
  Company Number: IT-PFIZER INC-2013353302

PATIENT
  Age: 56 Year
  Sex: Female

DRUGS (9)
  1. ADRIBLASTINA [Suspect]
     Indication: DIFFUSE LARGE B-CELL LYMPHOMA
     Dosage: 80 MG, CYCLIC
     Route: 042
     Dates: start: 20130820, end: 20131204
  2. VINCRISTINA PFIZER ITALIA [Interacting]
     Indication: DIFFUSE LARGE B-CELL LYMPHOMA
     Dosage: 2 MG, CYCLIC
     Route: 042
     Dates: start: 20130820, end: 20131204
  3. MABTHERA [Interacting]
     Indication: DIFFUSE LARGE B-CELL LYMPHOMA
     Dosage: 600 MG, CYCLIC
     Route: 042
     Dates: start: 20130820, end: 20131204
  4. TACHIPIRINA [Concomitant]
     Indication: PREMEDICATION
     Dosage: 1 G, UNK
     Route: 048
     Dates: start: 20130820, end: 20131204
  5. TRIMETON [Concomitant]
     Indication: PREMEDICATION
     Dosage: 10 MG, UNK
     Route: 042
     Dates: start: 20130820, end: 20131204
  6. URBASON SOLUBILE [Concomitant]
     Indication: PREMEDICATION
     Dosage: 40 MG, UNK
     Route: 042
     Dates: start: 20130820, end: 20131204
  7. KYTRIL [Concomitant]
     Indication: PROPHYLAXIS OF NAUSEA AND VOMITING
     Dosage: 3 MG, UNK
     Route: 042
     Dates: start: 20130820, end: 20131204
  8. ZANTAC [Concomitant]
     Indication: PROPHYLAXIS
     Dosage: 50 MG, UNK
     Route: 042
     Dates: start: 20130820, end: 20131204
  9. ENDOXAN-BAXTER [Concomitant]
     Indication: CHEMOTHERAPY
     Dosage: 1200 MG, UNK
     Route: 042
     Dates: start: 20130820, end: 20131204

REACTIONS (2)
  - Drug interaction [Recovering/Resolving]
  - Venous thrombosis [Recovering/Resolving]
